FAERS Safety Report 9397688 (Version 2)
Quarter: 2014Q2

REPORT INFORMATION
  Report Type: Report from Study
  Country: US (occurrence: US)
  Receive Date: 20130712
  Receipt Date: 20140408
  Transmission Date: 20141212
  Serious: Yes (Other)
  Sender: FDA-Public Use
  Company Number: US-BAYER-2013-061514

PATIENT
  Age: 66 Year
  Sex: Male

DRUGS (2)
  1. STIVARGA [Suspect]
     Indication: COLON CANCER
     Dosage: 160 MG, QD
     Route: 048
  2. WARFARIN [Concomitant]

REACTIONS (6)
  - Blood pressure diastolic increased [None]
  - Palmar-plantar erythrodysaesthesia syndrome [None]
  - Hyperkeratosis [None]
  - International normalised ratio increased [None]
  - Fatigue [None]
  - Colon cancer [None]
